FAERS Safety Report 18474601 (Version 1)
Quarter: 2020Q4

REPORT INFORMATION
  Report Type: Spontaneous
  Country: US (occurrence: US)
  Receive Date: 20201106
  Receipt Date: 20201106
  Transmission Date: 20210114
  Serious: Yes (Other)
  Sender: FDA-Public Use
  Company Number: US-PURDUE-USA-2020-0173966

PATIENT
  Sex: Female

DRUGS (2)
  1. OXYCONTIN [Suspect]
     Active Substance: OXYCODONE HYDROCHLORIDE
     Indication: PAIN
     Dosage: 1400 MG, DAILY
     Route: 048
  2. HYDROCODONE BITARTRATE AND ACETAMINOPHEN [Suspect]
     Active Substance: ACETAMINOPHEN\HYDROCODONE BITARTRATE
     Indication: PAIN
     Dosage: UNK
     Route: 048

REACTIONS (10)
  - Hypersomnia [Unknown]
  - Emotional distress [Unknown]
  - Drug dependence [Unknown]
  - Behaviour disorder [Unknown]
  - Aggression [Unknown]
  - Injury [Unknown]
  - Mania [Unknown]
  - Bipolar disorder [Unknown]
  - Knee arthroplasty [Unknown]
  - Feeling abnormal [Unknown]
